FAERS Safety Report 7210241-6 (Version None)
Quarter: 2010Q4

REPORT INFORMATION
  Report Type: 
  Country: None (occurrence: None)
  Receive Date: 20101223
  Receipt Date: 20101213
  Transmission Date: 20110411
  Serious: Yes (Hospitalization)
  Sender: FDA-Public Use
  Company Number: 019655

PATIENT
  Sex: Male
  Weight: 27.2 kg

DRUGS (4)
  1. CIMZIA [Suspect]
     Indication: CROHN'S DISEASE
     Dosage: (200 MG 1X/MONTH SUBCUTANEOUS)
     Route: 058
     Dates: start: 20100305, end: 20101030
  2. CIMZIA [Suspect]
     Indication: OFF LABEL USE
     Dosage: (200 MG 1X/MONTH SUBCUTANEOUS)
     Route: 058
     Dates: start: 20100305, end: 20101030
  3. CLINDAMYCIN [Suspect]
     Dates: start: 20100921
  4. METHOTREXATE [Concomitant]

REACTIONS (9)
  - DIARRHOEA [None]
  - DYSSTASIA [None]
  - FATIGUE [None]
  - GASTROSTOMY TUBE INSERTION [None]
  - INFECTION [None]
  - PAIN [None]
  - PHARYNGEAL ULCERATION [None]
  - PYREXIA [None]
  - VENA CAVA THROMBOSIS [None]
